FAERS Safety Report 10872733 (Version 3)
Quarter: 2015Q2

REPORT INFORMATION
  Report Type: Report from Study
  Country: CL (occurrence: CL)
  Receive Date: 20150227
  Receipt Date: 20150617
  Transmission Date: 20150821
  Serious: Yes (Other)
  Sender: FDA-Public Use
  Company Number: CL-ROCHE-1542376

PATIENT
  Age: 40 Year
  Sex: Female
  Weight: 60 kg

DRUGS (4)
  1. XELODA [Suspect]
     Active Substance: CAPECITABINE
     Dosage: 14 DAYS PER CYCLE
     Route: 048
     Dates: start: 20150214
  2. XELODA [Suspect]
     Active Substance: CAPECITABINE
     Indication: BREAST CANCER
     Dosage: 14 DAYS PER CYCLE
     Route: 048
     Dates: start: 20150102
  3. HERCEPTIN [Suspect]
     Active Substance: TRASTUZUMAB
     Indication: BREAST CANCER
     Route: 058
     Dates: start: 20150214
  4. XELODA [Suspect]
     Active Substance: CAPECITABINE
     Route: 048
     Dates: end: 201505

REACTIONS (17)
  - Palmar-plantar erythrodysaesthesia syndrome [Recovered/Resolved]
  - Skin swelling [Not Recovered/Not Resolved]
  - Erythema [Not Recovered/Not Resolved]
  - Nail disorder [Not Recovered/Not Resolved]
  - Onychomadesis [Not Recovered/Not Resolved]
  - Dysgeusia [Not Recovered/Not Resolved]
  - Skin exfoliation [Not Recovered/Not Resolved]
  - Wound [Recovered/Resolved]
  - Dry skin [Not Recovered/Not Resolved]
  - Blister [Not Recovered/Not Resolved]
  - Pain [Not Recovered/Not Resolved]
  - Mouth swelling [Recovered/Resolved]
  - Hypoaesthesia [Not Recovered/Not Resolved]
  - Pruritus [Not Recovered/Not Resolved]
  - Skin fissures [Not Recovered/Not Resolved]
  - Pyrexia [Recovered/Resolved]
  - Limb discomfort [Not Recovered/Not Resolved]

NARRATIVE: CASE EVENT DATE: 20150102
